FAERS Safety Report 4274352-X (Version None)
Quarter: 2004Q1

REPORT INFORMATION
  Report Type: 
  Country: None (occurrence: None)
  Receive Date: 20040115
  Receipt Date: 20040105
  Transmission Date: 20041129
  Serious: Yes (Hospitalization)
  Sender: FDA-Public Use
  Company Number: CH-JNJFOC-20040100358

PATIENT
  Sex: Female

DRUGS (7)
  1. MOTILIUM [Suspect]
     Indication: NAUSEA
     Dosage: 30 MG, ORAL
     Route: 048
     Dates: start: 20030901, end: 20030904
  2. TRAMADOL HCL [Suspect]
     Indication: PAIN
     Dosage: 50 MG, INTRAVENOUS
     Route: 042
     Dates: start: 20030902, end: 20030902
  3. DICLOFENAC SODIUM [Suspect]
     Indication: PAIN
     Dosage: 150 MG, ORAL
     Route: 048
     Dates: start: 20030901, end: 20030904
  4. CEFPODOXIME PROXETIL [Suspect]
     Indication: OTITIS MEDIA ACUTE
     Dosage: 400 MG, ORAL
     Route: 048
     Dates: start: 20030902, end: 20030903
  5. MEFENAMIC ACID [Suspect]
     Indication: PAIN
     Dosage: 500 MG, ORAL
     Route: 048
     Dates: start: 20030902, end: 20030902
  6. TRIOFAN (SPRAY) [Concomitant]
  7. SEROPRAM (TABLETS) CITALOPRAM HYDROBROMIDE [Concomitant]

REACTIONS (3)
  - MULTI-ORGAN FAILURE [None]
  - SEPTIC SHOCK [None]
  - STEVENS-JOHNSON SYNDROME [None]
